FAERS Safety Report 25496992 (Version 1)
Quarter: 2025Q3

REPORT INFORMATION
  Report Type: Spontaneous
  Country: US (occurrence: US)
  Receive Date: 20250701
  Receipt Date: 20250701
  Transmission Date: 20251021
  Serious: No
  Sender: BRISTOL-MYERS SQUIBB COMPANY
  Company Number: US-BRISTOL-MYERS SQUIBB COMPANY-2025-092481

PATIENT
  Age: 81 Year
  Sex: Female

DRUGS (1)
  1. THALOMID [Suspect]
     Active Substance: THALIDOMIDE
     Indication: Hereditary haemorrhagic telangiectasia
     Route: 048
     Dates: start: 202505

REACTIONS (2)
  - Drug hypersensitivity [Unknown]
  - Off label use [Unknown]
